FAERS Safety Report 21786792 (Version 2)
Quarter: 2023Q1

REPORT INFORMATION
  Report Type: Report from Study
  Country: US (occurrence: US)
  Receive Date: 20221228
  Receipt Date: 20230104
  Transmission Date: 20230418
  Serious: No
  Sender: FDA-Public Use
  Company Number: US-ABBVIE-4249995

PATIENT
  Sex: Female

DRUGS (10)
  1. RINVOQ [Suspect]
     Active Substance: UPADACITINIB
     Indication: Rheumatoid arthritis
     Route: 048
  2. TIZANIDINE [Concomitant]
     Active Substance: TIZANIDINE
     Indication: Product used for unknown indication
  3. CEFDINIR [Concomitant]
     Active Substance: CEFDINIR
     Indication: Product used for unknown indication
  4. TRAMADOL HCL TAB 50MG [Concomitant]
     Indication: Product used for unknown indication
  5. OXYBUTYNIN TAB 5MG [Concomitant]
     Indication: Product used for unknown indication
  6. METFORMIN TAB 1000MG [Concomitant]
     Indication: Product used for unknown indication
  7. GABAPENTIN CAP 400MG [Concomitant]
     Indication: Product used for unknown indication
  8. PREVNAR 13 INJ [Concomitant]
     Indication: Product used for unknown indication
  9. METHOTREXATE [Concomitant]
     Active Substance: METHOTREXATE
     Indication: Product used for unknown indication
  10. LISINOPRIL TAB 40MG [Concomitant]
     Indication: Product used for unknown indication

REACTIONS (4)
  - Gallbladder hypofunction [Not Recovered/Not Resolved]
  - Hepatic mass [Not Recovered/Not Resolved]
  - Skin discolouration [Not Recovered/Not Resolved]
  - Illness [Not Recovered/Not Resolved]
